FAERS Safety Report 18584206 (Version 1)
Quarter: 2020Q4

REPORT INFORMATION
  Report Type: Spontaneous
  Country: FR (occurrence: FR)
  Receive Date: 20201207
  Receipt Date: 20201207
  Transmission Date: 20210114
  Serious: Yes (Other)
  Sender: FDA-Public Use
  Company Number: FR-SUN PHARMACEUTICAL INDUSTRIES LTD-2020RR-270077

PATIENT
  Age: 20 Year
  Sex: Male

DRUGS (2)
  1. LAMALINE (ACETAMINOPHEN\BELLADONNA LEAF\CAFFEINE\OPIUM) [Suspect]
     Active Substance: ACETAMINOPHEN\BELLADONNA LEAF\CAFFEINE\OPIUM
     Indication: PERFORMANCE ENHANCING PRODUCT USE
     Dosage: 100 MILLIGRAM, IN TOTAL
     Route: 048
     Dates: start: 20200410
  2. TRAMADOL. [Suspect]
     Active Substance: TRAMADOL
     Indication: PERFORMANCE ENHANCING PRODUCT USE
     Dosage: 400 MILLIGRAM, IN TOTAL
     Route: 048
     Dates: start: 20200410

REACTIONS (1)
  - Seizure [Recovered/Resolved]

NARRATIVE: CASE EVENT DATE: 20200411
